FAERS Safety Report 13101493 (Version 1)
Quarter: 2017Q1

REPORT INFORMATION
  Report Type: Spontaneous
  Country: CH (occurrence: BR)
  Receive Date: 20170110
  Receipt Date: 20170110
  Transmission Date: 20170428
  Serious: Yes (Hospitalization)
  Sender: FDA-Public Use
  Company Number: CH-LPDUSPRD-20161162

PATIENT
  Age: 44 Year
  Sex: Female

DRUGS (4)
  1. ARA DORIS [Concomitant]
     Dosage: DOSE UNKNOWN
     Route: 065
  2. FERINJECT [Suspect]
     Active Substance: FERRIC CARBOXYMALTOSE
     Dosage: 2 AMPOULES
     Route: 042
     Dates: start: 20160108
  3. UNSPECIFIED ANTIDEPRESSANT [Concomitant]
     Dosage: DOSE UNKNOWN
     Route: 065
  4. UNSPECIFIED ANTIOXYLITIC [Concomitant]
     Dosage: DOSE UNKNOWN
     Route: 065

REACTIONS (2)
  - Condition aggravated [Recovered/Resolved]
  - Leiomyoma [Recovered/Resolved]

NARRATIVE: CASE EVENT DATE: 20161218
